FAERS Safety Report 16119562 (Version 6)
Quarter: 2019Q4

REPORT INFORMATION
  Report Type: Spontaneous
  Country: US (occurrence: US)
  Receive Date: 20190326
  Receipt Date: 20191223
  Transmission Date: 20200122
  Serious: Yes (Other)
  Sender: FDA-Public Use
  Company Number: US-PFIZER INC-2019123264

PATIENT
  Age: 61 Year
  Sex: Female
  Weight: 58.97 kg

DRUGS (3)
  1. PREMPRO [Suspect]
     Active Substance: ESTROGENS, CONJUGATED\MEDROXYPROGESTERONE ACETATE
     Dosage: UNK, ALTERNATE DAY (EVERY OTHER DAY)
  2. PREMPRO [Suspect]
     Active Substance: ESTROGENS, CONJUGATED\MEDROXYPROGESTERONE ACETATE
     Indication: OSTEOPOROSIS
     Dosage: ESTROGENS 0.625 MG/ MEDROXYPROGESTERONE ACETATE 5 MG
  3. PREMPRO [Suspect]
     Active Substance: ESTROGENS, CONJUGATED\MEDROXYPROGESTERONE ACETATE
     Indication: HOT FLUSH
     Dosage: UNK UNK, DAILY, (ESTROGENS 0.625 MG/ MEDROXYPROGESTERONE ACETATE 2.5 MG)
     Route: 048
     Dates: start: 2017

REACTIONS (6)
  - Colon cancer [Recovered/Resolved]
  - Uterine haemorrhage [Recovered/Resolved]
  - Intentional product misuse [Unknown]
  - Insomnia [Unknown]
  - Product dispensing error [Unknown]
  - Hot flush [Unknown]

NARRATIVE: CASE EVENT DATE: 2018
